FAERS Safety Report 25335630 (Version 2)
Quarter: 2025Q4

REPORT INFORMATION
  Report Type: Spontaneous
  Country: US (occurrence: US)
  Receive Date: 20250520
  Receipt Date: 20251126
  Transmission Date: 20260118
  Serious: Yes (Other)
  Sender: COOPERSURGICAL
  Company Number: US-COOPERSURGICAL, INC.-2025CPS003988

PATIENT
  Age: 27 Year
  Sex: Female
  Weight: 61.678 kg

DRUGS (1)
  1. PARAGARD T 380A [Suspect]
     Active Substance: COPPER
     Indication: Contraception
     Dosage: UNK
     Route: 015
     Dates: start: 20090101, end: 20210211

REACTIONS (21)
  - Surgery [Recovered/Resolved]
  - Reproductive complication associated with device [Unknown]
  - Infertility female [Not Recovered/Not Resolved]
  - Device breakage [Recovered/Resolved]
  - Foreign body in reproductive tract [Recovered/Resolved]
  - Complication of device removal [Recovered/Resolved]
  - Embedded device [Recovered/Resolved]
  - Pelvic inflammatory disease [Unknown]
  - Emotional distress [Unknown]
  - Sexual dysfunction [Unknown]
  - Procedural pain [Recovered/Resolved]
  - Iron deficiency anaemia [Recovered/Resolved]
  - Vaginal infection [Recovered/Resolved]
  - Heavy menstrual bleeding [Recovered/Resolved]
  - Amenorrhoea [Unknown]
  - Intermenstrual bleeding [Recovered/Resolved]
  - Pelvic pain [Unknown]
  - Abnormal uterine bleeding [Unknown]
  - Pain [Recovered/Resolved]
  - Intentional device use issue [Unknown]
  - Off label use [Unknown]

NARRATIVE: CASE EVENT DATE: 20090101
